FAERS Safety Report 18930212 (Version 1)
Quarter: 2021Q1

REPORT INFORMATION
  Report Type: Spontaneous
  Country: US (occurrence: US)
  Receive Date: 20210224
  Receipt Date: 20210224
  Transmission Date: 20210420
  Serious: No
  Sender: FDA-Public Use
  Company Number: US-JNJFOC-20210233450

PATIENT
  Age: 51 Year
  Sex: Male

DRUGS (2)
  1. CABOTEGRAVIR [Suspect]
     Active Substance: CABOTEGRAVIR
     Indication: HIV INFECTION
     Route: 065
  2. RILPIVIRINE [Suspect]
     Active Substance: RILPIVIRINE
     Indication: HIV INFECTION
     Route: 030

REACTIONS (1)
  - Oral herpes [Not Recovered/Not Resolved]

NARRATIVE: CASE EVENT DATE: 202101
